FAERS Safety Report 4276624-1 (Version None)
Quarter: 2004Q1

REPORT INFORMATION
  Report Type: 
  Country: None (occurrence: None)
  Receive Date: 20040120
  Receipt Date: 20040105
  Transmission Date: 20041129
  Serious: Yes (Disabling, Other)
  Sender: FDA-Public Use
  Company Number: 200110746BCC

PATIENT
  Age: 70 Year
  Sex: Female
  Weight: 43.0917 kg

DRUGS (1)
  1. ALEVE [Suspect]
     Indication: PAIN
     Dosage: 220 MG, QD ORAL
     Route: 048
     Dates: start: 20000901, end: 20000903

REACTIONS (15)
  - BLINDNESS UNILATERAL [None]
  - BREAST CANCER [None]
  - BREAST PAIN [None]
  - DIVERTICULUM INTESTINAL [None]
  - HAEMANGIOMA [None]
  - HEPATITIS GRANULOMATOUS [None]
  - HIATUS HERNIA [None]
  - OEDEMA PERIPHERAL [None]
  - OSTEOPOROSIS [None]
  - PAIN [None]
  - RETINAL ARTERY OCCLUSION [None]
  - SCOLIOSIS [None]
  - SPONDYLOSIS [None]
  - THROMBOSIS [None]
  - WEIGHT DECREASED [None]
